FAERS Safety Report 24103543 (Version 2)
Quarter: 2024Q3

REPORT INFORMATION
  Report Type: Spontaneous
  Country: TW (occurrence: TW)
  Receive Date: 20240717
  Receipt Date: 20240723
  Transmission Date: 20241017
  Serious: Yes (Other)
  Sender: ROCHE
  Company Number: TW-CHUGAI-2024023431

PATIENT
  Age: 10 Day

DRUGS (5)
  1. HEMLIBRA [Suspect]
     Active Substance: EMICIZUMAB-KXWH
     Indication: Factor VIII deficiency
     Dosage: 3 MG/KG (LOADING DOSE)
     Route: 050
     Dates: start: 20230907
  2. HEMLIBRA [Suspect]
     Active Substance: EMICIZUMAB-KXWH
     Dosage: 6 MILLIGRAM/KILOGRAM, ONCE/MONTH
     Route: 050
  3. HEMLIBRA [Suspect]
     Active Substance: EMICIZUMAB-KXWH
     Dosage: 6.7 MILLIGRAM/KILOGRAM
     Route: 050
     Dates: start: 20240207
  4. ELOCTATE [Concomitant]
     Active Substance: EFMOROCTOCOG ALFA
     Indication: Factor VIII deficiency
     Dosage: 500 INTERNATIONAL UNIT
     Route: 050
  5. ELOCTATE [Concomitant]
     Active Substance: EFMOROCTOCOG ALFA
     Dosage: 500 INTERNATIONAL UNIT
     Route: 050

REACTIONS (4)
  - Mouth injury [Recovered/Resolved]
  - Incarcerated inguinal hernia [Recovered/Resolved]
  - Off label use [Unknown]
  - Off label use [Unknown]

NARRATIVE: CASE EVENT DATE: 20240108
